FAERS Safety Report 9605093 (Version 1)
Quarter: 2013Q4

REPORT INFORMATION
  Report Type: Spontaneous
  Country: US (occurrence: US)
  Receive Date: 20131008
  Receipt Date: 20131008
  Transmission Date: 20140711
  Serious: Yes (Hospitalization)
  Sender: FDA-Public Use
  Company Number: US-B.I. PHARMACEUTICALS,INC./RIDGEFIELD-2013-BI-31269BP

PATIENT
  Age: 62 Year
  Sex: Female
  Weight: 77 kg

DRUGS (6)
  1. COMBIVENT [Suspect]
     Indication: PNEUMONIA
     Dosage: STRENGTH: 18 MCG / 103 MCG; DAILY DOSE: 144 MCG / 824 MCG
     Route: 055
     Dates: start: 2006, end: 20131002
  2. NAPROXEN [Concomitant]
     Indication: CARPAL TUNNEL SYNDROME
     Route: 048
     Dates: start: 2013
  3. NAPROXEN [Concomitant]
     Dosage: (TABLET) STRENGTH: 500 MG;
     Route: 048
     Dates: start: 2013
  4. TYLENOL WITH CODEINE [Concomitant]
     Indication: ARTHRALGIA
     Dosage: (TABLET) STRENGTH: 30 MG / 325 MG;
     Route: 048
     Dates: start: 1975
  5. TYLENOL WITH CODEINE [Concomitant]
     Indication: PAIN IN EXTREMITY
     Dosage: (TABLET) STRENGTH: 60 MG / 325 MG;
     Route: 048
     Dates: start: 1975
  6. PRAVASTATIN [Concomitant]
     Indication: BLOOD CHOLESTEROL INCREASED
     Dosage: 10 MG
     Route: 048
     Dates: start: 2012

REACTIONS (11)
  - Rectal haemorrhage [Recovered/Resolved]
  - Nasopharyngitis [Not Recovered/Not Resolved]
  - Feeling abnormal [Not Recovered/Not Resolved]
  - Upper-airway cough syndrome [Not Recovered/Not Resolved]
  - Nasal congestion [Not Recovered/Not Resolved]
  - Dysphonia [Not Recovered/Not Resolved]
  - Oropharyngeal pain [Recovered/Resolved]
  - Chills [Recovered/Resolved]
  - Increased upper airway secretion [Not Recovered/Not Resolved]
  - Cough [Not Recovered/Not Resolved]
  - Off label use [Recovered/Resolved]
